FAERS Safety Report 8264923-8 (Version None)
Quarter: 2012Q2

REPORT INFORMATION
  Report Type: 
  Country: None (occurrence: None)
  Receive Date: 20120406
  Receipt Date: 20120327
  Transmission Date: 20120825
  Serious: Yes (Hospitalization)
  Sender: FDA-Public Use
  Company Number: FR-JNJFOC-20110105901

PATIENT
  Age: 44 Year
  Sex: Female
  Weight: 50.7 kg

DRUGS (4)
  1. REMICADE [Suspect]
     Route: 042
     Dates: start: 20100531
  2. AZATHIOPRINE [Concomitant]
     Indication: COLITIS ULCERATIVE
     Route: 048
     Dates: start: 20050101
  3. REMICADE [Suspect]
     Indication: COLITIS ULCERATIVE
     Route: 042
     Dates: start: 20100708
  4. REMICADE [Suspect]
     Route: 042
     Dates: start: 20100607

REACTIONS (3)
  - ABDOMINAL PAIN [None]
  - COLECTOMY [None]
  - GENERAL PHYSICAL HEALTH DETERIORATION [None]
